FAERS Safety Report 10495970 (Version 3)
Quarter: 2014Q4

REPORT INFORMATION
  Report Type: Spontaneous
  Country: DZ (occurrence: DZ)
  Receive Date: 20141003
  Receipt Date: 20141015
  Transmission Date: 20150528
  Serious: Yes (Hospitalization)
  Sender: FDA-Public Use
  Company Number: DZ-B.I. PHARMACEUTICALS,INC./RIDGEFIELD-2014-BI-47225DZ

PATIENT
  Sex: Male

DRUGS (3)
  1. MICARDIS [Suspect]
     Active Substance: TELMISARTAN
     Indication: DIABETIC NEPHROPATHY
     Dosage: 80 MG
     Route: 002
  2. MICARDIS [Suspect]
     Active Substance: TELMISARTAN
     Indication: PROPHYLAXIS
  3. MICARDIS [Suspect]
     Active Substance: TELMISARTAN
     Indication: MICROALBUMINURIA

REACTIONS (2)
  - Cerebrovascular accident [Recovered/Resolved]
  - Hypotension [Recovered/Resolved]
